FAERS Safety Report 9201732 (Version 1)
Quarter: 2013Q2

REPORT INFORMATION
  Report Type: Spontaneous
  Country: NL (occurrence: NL)
  Receive Date: 20130401
  Receipt Date: 20130401
  Transmission Date: 20140414
  Serious: Yes (Death)
  Sender: FDA-Public Use
  Company Number: PHHY2013NL030985

PATIENT
  Sex: Male

DRUGS (3)
  1. TOBI [Suspect]
     Indication: BRONCHIECTASIS
     Dosage: UNK
     Dates: end: 201210
  2. TOBI [Suspect]
     Dosage: UNK
     Dates: start: 20130125
  3. OXYGEN [Concomitant]

REACTIONS (1)
  - Death [Fatal]
